FAERS Safety Report 10182354 (Version 1)
Quarter: 2014Q2

REPORT INFORMATION
  Report Type: Spontaneous
  Country: US (occurrence: None)
  Receive Date: 20140519
  Receipt Date: 20140519
  Transmission Date: 20141212
  Serious: Yes (Hospitalization)
  Sender: FDA-Public Use
  Company Number: None

PATIENT
  Age: 80 Year
  Sex: Male
  Weight: 59.2 kg

DRUGS (3)
  1. FLUOROURACIL (5-FU) [Suspect]
  2. LEUCOVORIN CALCIUM [Suspect]
  3. OXALIPLATIN (ELOXATIN) [Suspect]

REACTIONS (5)
  - Neutropenia [None]
  - Septic shock [None]
  - Lung consolidation [None]
  - Pneumonia [None]
  - Klebsiella test positive [None]
